FAERS Safety Report 5717762-3 (Version None)
Quarter: 2008Q2

REPORT INFORMATION
  Report Type: 
  Country: None (occurrence: None)
  Receive Date: 20080425
  Receipt Date: 20080416
  Transmission Date: 20081010
  Serious: No
  Sender: FDA-Public Use
  Company Number: FR-BAXTER-2008BH003962

PATIENT
  Age: 82 Year
  Sex: Female

DRUGS (4)
  1. GAMMAGARD S/D [Suspect]
     Indication: HYPOGAMMAGLOBULINAEMIA
     Route: 042
     Dates: start: 20080331, end: 20080331
  2. GAMMAGARD S/D [Suspect]
     Route: 042
     Dates: start: 20080407, end: 20080407
  3. CLAFORAN [Concomitant]
     Indication: PYREXIA
     Dates: start: 20080101
  4. VANCOMYCIN [Concomitant]
     Indication: PYREXIA
     Dates: start: 20080101

REACTIONS (4)
  - CHILLS [None]
  - OXYGEN SATURATION DECREASED [None]
  - PYREXIA [None]
  - TACHYPNOEA [None]
